FAERS Safety Report 11683298 (Version 1)
Quarter: 2015Q4

REPORT INFORMATION
  Report Type: Spontaneous
  Country: CH (occurrence: CH)
  Receive Date: 20151029
  Receipt Date: 20151029
  Transmission Date: 20160304
  Serious: Yes (Congenital Anomaly, Other)
  Sender: FDA-Public Use
  Company Number: CH-GLAXOSMITHKLINE-CH2015150290

PATIENT
  Age: 0 Year
  Sex: Male
  Weight: .4 kg

DRUGS (7)
  1. VENTOLIN [Suspect]
     Active Substance: ALBUTEROL SULFATE
     Indication: ASTHMA
     Route: 064
  2. NEBILET [Suspect]
     Active Substance: NEBIVOLOL
     Indication: HYPERTENSION
     Route: 064
  3. DIOVAN [Suspect]
     Active Substance: VALSARTAN
     Indication: HYPERTENSION
     Route: 064
     Dates: end: 20131201
  4. XYZAL [Suspect]
     Active Substance: LEVOCETIRIZINE DIHYDROCHLORIDE
     Route: 064
  5. DAFALGAN [Suspect]
     Active Substance: ACETAMINOPHEN
     Route: 064
  6. LESCOL [Suspect]
     Active Substance: FLUVASTATIN SODIUM
     Route: 064
     Dates: end: 20131130
  7. SYMBICORT [Suspect]
     Active Substance: BUDESONIDE\FORMOTEROL FUMARATE DIHYDRATE
     Indication: ASTHMA
     Route: 064

REACTIONS (27)
  - Hypokalaemia [Recovered/Resolved]
  - Hyperbilirubinaemia neonatal [Recovered/Resolved]
  - Bronchopulmonary dysplasia [Recovered/Resolved]
  - Patent ductus arteriosus [Recovered/Resolved]
  - Maternal drugs affecting foetus [None]
  - Thrombocytopenia [Recovered/Resolved]
  - Rhinovirus infection [None]
  - Serratia infection [None]
  - Staphylococcal infection [None]
  - Neonatal infection [Recovered/Resolved]
  - Nosocomial infection [None]
  - Respiratory failure [None]
  - Pulmonary hypertension [None]
  - Atrial septal defect [Unknown]
  - Placental insufficiency [None]
  - Streptococcal infection [None]
  - Neonatal respiratory distress syndrome [Recovered/Resolved]
  - Renal failure [Recovered/Resolved]
  - Hypoglycaemia neonatal [Recovered/Resolved]
  - Congenital inguinal hernia [Recovered/Resolved]
  - Exposure during pregnancy [Recovered/Resolved]
  - Poor sucking reflex [None]
  - Premature baby [Recovered/Resolved]
  - Foetal growth restriction [Recovered/Resolved]
  - Anaemia [Recovered/Resolved]
  - Metabolic alkalosis [Recovered/Resolved]
  - Enterobacter infection [None]
